FAERS Safety Report 7081459-0 (Version None)
Quarter: 2010Q4

REPORT INFORMATION
  Report Type: 
  Country: None (occurrence: None)
  Receive Date: 20101102
  Receipt Date: 20101102
  Transmission Date: 20110411
  Serious: Yes (Death)
  Sender: FDA-Public Use
  Company Number: None

PATIENT
  Age: 50 Year
  Sex: Male
  Weight: 106 kg

DRUGS (1)
  1. DEXMEDETOMIDINE HYDROCHLORIDE [Suspect]
     Indication: SEDATION
     Dates: start: 20100607, end: 20100607

REACTIONS (6)
  - ATRIAL FIBRILLATION [None]
  - CARDIAC ARREST [None]
  - CARDIAC TAMPONADE [None]
  - HYPOTENSION [None]
  - IDIOSYNCRATIC DRUG REACTION [None]
  - SINUS ARREST [None]
